FAERS Safety Report 10243840 (Version 1)
Quarter: 2014Q2

REPORT INFORMATION
  Report Type: Spontaneous
  Country: FR (occurrence: FR)
  Receive Date: 20140618
  Receipt Date: 20140618
  Transmission Date: 20141212
  Serious: Yes (Life-Threatening)
  Sender: FDA-Public Use
  Company Number: FR-PFIZER INC-2014165120

PATIENT
  Age: 60 Year
  Sex: Male

DRUGS (3)
  1. EFFEXOR [Suspect]
     Indication: MAJOR DEPRESSION
     Dosage: 37.5 MG, 2X/DAY
     Route: 048
     Dates: start: 20130217, end: 2014
  2. XANAX [Concomitant]
     Dosage: 0.25 MG
  3. THERALENE [Concomitant]

REACTIONS (1)
  - Myocardial infarction [Recovered/Resolved]
